FAERS Safety Report 5526250-9 (Version None)
Quarter: 2007Q4

REPORT INFORMATION
  Report Type: 
  Country: None (occurrence: None)
  Receive Date: 20071127
  Receipt Date: 20071115
  Transmission Date: 20080405
  Serious: Yes (Disabling)
  Sender: FDA-Public Use
  Company Number: CA-JNJFOC-20071106544

PATIENT
  Sex: Female
  Weight: 63.5 kg

DRUGS (7)
  1. EXTRA STRENGTH TYLENOL [Suspect]
     Route: 048
  2. EXTRA STRENGTH TYLENOL [Suspect]
     Indication: ANALGESIA
     Dosage: 500-1000 MG A DAY AS NECESSARY
     Route: 048
  3. CALCIUM SUPPLEMENTS [Concomitant]
  4. ACTONEL [Concomitant]
  5. NSAID [Concomitant]
  6. SADAFEX [Concomitant]
  7. SESEMEX [Concomitant]

REACTIONS (3)
  - DRUG INEFFECTIVE [None]
  - MUSCLE TIGHTNESS [None]
  - SENSORY DISTURBANCE [None]
